FAERS Safety Report 16407175 (Version 2)
Quarter: 2019Q3

REPORT INFORMATION
  Report Type: Spontaneous
  Country: JP (occurrence: JP)
  Receive Date: 20190608
  Receipt Date: 20190711
  Transmission Date: 20191004
  Serious: Yes (Hospitalization, Other)
  Sender: FDA-Public Use
  Company Number: JP-AMGEN-JPNSP2019091918

PATIENT
  Age: 82 Year
  Sex: Male

DRUGS (7)
  1. PRALIA [Suspect]
     Active Substance: DENOSUMAB
     Indication: RHEUMATOID VASCULITIS
     Dosage: UNK
     Route: 065
     Dates: start: 201805
  2. PREDNISOLONE. [Concomitant]
     Active Substance: PREDNISOLONE
     Dosage: UNK
     Route: 065
     Dates: start: 201805, end: 201809
  3. TOCILIZUMAB. [Concomitant]
     Active Substance: TOCILIZUMAB
     Dosage: 162 MG, ONCE EVERY 2 WK
     Route: 065
     Dates: start: 201805, end: 201809
  4. PREDNISOLONE. [Concomitant]
     Active Substance: PREDNISOLONE
     Indication: RHEUMATOID VASCULITIS
     Dosage: 30 MILLIGRAM
     Route: 065
     Dates: start: 201712, end: 2018
  5. METHOTREXATE. [Concomitant]
     Active Substance: METHOTREXATE
     Indication: RHEUMATOID VASCULITIS
     Dosage: 6MG/WEEK
     Route: 065
     Dates: start: 201712, end: 201803
  6. METHOTREXATE. [Concomitant]
     Active Substance: METHOTREXATE
     Dosage: 6MG/WEEK
     Route: 065
     Dates: start: 201805, end: 201809
  7. TOCILIZUMAB. [Concomitant]
     Active Substance: TOCILIZUMAB
     Indication: RHEUMATOID VASCULITIS
     Dosage: 162 MG, ONCE EVERY 2 WK
     Route: 065
     Dates: start: 201712, end: 201803

REACTIONS (2)
  - Spinal compression fracture [Recovered/Resolved]
  - Pneumonia [Recovered/Resolved]
